FAERS Safety Report 14422378 (Version 3)
Quarter: 2018Q3

REPORT INFORMATION
  Report Type: Report from Study
  Country: None (occurrence: GB)
  Receive Date: 20180123
  Receipt Date: 20180905
  Transmission Date: 20181010
  Serious: Yes (Hospitalization)
  Sender: FDA-Public Use
  Company Number: GB-ABBVIE-18P-167-2217153-00

PATIENT
  Age: 16 Year
  Sex: Female

DRUGS (51)
  1. KETOCONAZOLE. [Concomitant]
     Active Substance: KETOCONAZOLE
     Indication: FUNGAL SKIN INFECTION
     Route: 061
     Dates: start: 20170731
  2. DOXYCYCLINE. [Concomitant]
     Active Substance: DOXYCYCLINE
     Indication: VASCULITIS
     Dosage: MOUTHWASH
     Dates: start: 20171027
  3. CHLORHEXIDINE 0.2% [Concomitant]
     Indication: CROHN^S DISEASE
     Route: 048
     Dates: start: 20171222
  4. METRONIDAZOLE. [Concomitant]
     Active Substance: METRONIDAZOLE
     Indication: CROHN^S DISEASE
     Route: 048
     Dates: start: 20171222, end: 20171223
  5. PARACETAMOL [Concomitant]
     Active Substance: ACETAMINOPHEN
     Indication: PROCEDURAL PAIN
     Route: 048
     Dates: start: 20170822, end: 20170907
  6. CIPROFLOXACIN. [Concomitant]
     Active Substance: CIPROFLOXACIN
     Route: 040
     Dates: start: 20170726, end: 20170810
  7. CIPROFLOXACIN. [Concomitant]
     Active Substance: CIPROFLOXACIN
     Route: 040
     Dates: start: 20171027, end: 20171030
  8. FRESUBIN [Concomitant]
     Active Substance: AMINO ACIDS\DEXTROSE\ELECTROLYTES NOS\SOYBEAN OIL\VITAMINS
     Indication: NUTRITIONAL SUPPLEMENTATION
  9. PROTOPIC [Concomitant]
     Active Substance: TACROLIMUS
     Route: 061
     Dates: start: 2016, end: 20171130
  10. CIPROFLOXACIN. [Concomitant]
     Active Substance: CIPROFLOXACIN
     Route: 048
     Dates: start: 20170810, end: 20170827
  11. METRONIDAZOLE. [Concomitant]
     Active Substance: METRONIDAZOLE
     Route: 048
     Dates: start: 20171229
  12. METRONIDAZOLE. [Concomitant]
     Active Substance: METRONIDAZOLE
     Route: 040
     Dates: start: 20170726, end: 20170810
  13. AZATHIOPRINE. [Suspect]
     Active Substance: AZATHIOPRINE
     Indication: CROHN^S DISEASE
     Route: 048
     Dates: start: 20090401
  14. AZATHIOPRINE. [Suspect]
     Active Substance: AZATHIOPRINE
     Route: 048
     Dates: start: 20160831, end: 20161211
  15. CIPROFLOXACIN. [Concomitant]
     Active Substance: CIPROFLOXACIN
     Indication: CROHN^S DISEASE
     Route: 048
     Dates: start: 20161109, end: 20170107
  16. CIPROFLOXACIN. [Concomitant]
     Active Substance: CIPROFLOXACIN
     Route: 040
     Dates: start: 20170107, end: 20170112
  17. CIPROFLOXACIN. [Concomitant]
     Active Substance: CIPROFLOXACIN
     Route: 048
     Dates: start: 20170907, end: 20171027
  18. CIPROFLOXACIN. [Concomitant]
     Active Substance: CIPROFLOXACIN
     Route: 048
     Dates: start: 20171222, end: 20171223
  19. OMEPRAZOLE. [Concomitant]
     Active Substance: OMEPRAZOLE
     Indication: CROHN^S DISEASE
     Route: 040
     Dates: start: 20170107, end: 20170112
  20. PROTOPIC [Concomitant]
     Active Substance: TACROLIMUS
     Indication: VASCULITIS
     Route: 061
     Dates: start: 2016, end: 20171130
  21. SYNALAR [Concomitant]
     Active Substance: FLUOCINOLONE ACETONIDE
     Indication: SKIN INFECTION
     Dosage: GEL FOR SCALP
     Dates: start: 20170731
  22. BETAMETHASONE. [Concomitant]
     Active Substance: BETAMETHASONE
     Indication: VASCULITIS
     Dosage: MOUTHWASH
     Dates: start: 20171028
  23. HUMIRA [Suspect]
     Active Substance: ADALIMUMAB
     Route: 058
     Dates: start: 201710, end: 20180104
  24. CIPROFLOXACIN. [Concomitant]
     Active Substance: CIPROFLOXACIN
     Route: 048
     Dates: start: 20171031
  25. OMEPRAZOLE. [Concomitant]
     Active Substance: OMEPRAZOLE
     Route: 048
     Dates: start: 20170828
  26. FRESUBIN [Concomitant]
     Active Substance: AMINO ACIDS\DEXTROSE\ELECTROLYTES NOS\SOYBEAN OIL\VITAMINS
     Indication: VASCULITIS
  27. CHLORHEXIDINE 0.2% [Concomitant]
     Indication: VASCULITIS
     Dosage: MOUTHWASH
     Dates: start: 20171030
  28. NYSTATIN. [Concomitant]
     Active Substance: NYSTATIN
     Indication: CROHN^S DISEASE
     Route: 048
     Dates: start: 20171222
  29. HUMIRA [Suspect]
     Active Substance: ADALIMUMAB
     Indication: CROHN^S DISEASE
     Route: 058
     Dates: start: 20170112, end: 20170727
  30. AZATHIOPRINE. [Suspect]
     Active Substance: AZATHIOPRINE
     Route: 048
     Dates: start: 20161212, end: 201708
  31. ALIMEMAZINE [Concomitant]
     Active Substance: TRIMEPRAZINE
     Indication: CROHN^S DISEASE
     Route: 048
     Dates: start: 20171222, end: 20171223
  32. METRONIDAZOLE. [Concomitant]
     Active Substance: METRONIDAZOLE
     Route: 048
     Dates: start: 20170112, end: 20170418
  33. HYDROUS OINTMENT [Concomitant]
     Indication: CROHN^S DISEASE
     Dosage: TOPICAL CREAM
     Route: 061
     Dates: start: 20171222
  34. GENTAMICIN. [Concomitant]
     Active Substance: GENTAMICIN
     Indication: CROHN^S DISEASE
     Route: 048
     Dates: start: 20171229, end: 20180101
  35. CIPROFLOXACIN. [Concomitant]
     Active Substance: CIPROFLOXACIN
     Route: 040
     Dates: start: 20170827, end: 20170907
  36. FERROUS SULFATE. [Concomitant]
     Active Substance: FERROUS SULFATE
     Indication: CROHN^S DISEASE
     Route: 048
     Dates: start: 20121003
  37. NYSTATIN. [Concomitant]
     Active Substance: NYSTATIN
     Indication: VASCULITIS
     Route: 061
     Dates: start: 20171027
  38. ADCAL D3 [Concomitant]
     Active Substance: CALCIUM CARBONATE\CHOLECALCIFEROL
     Indication: VITAMIN SUPPLEMENTATION
     Route: 048
     Dates: start: 20171028
  39. LOTRIDERM [Concomitant]
     Active Substance: BETAMETHASONE DIPROPIONATE\CLOTRIMAZOLE
     Indication: VASCULITIS
     Route: 061
     Dates: start: 20171028
  40. EUMOVATE OINTMENT [Concomitant]
     Indication: VASCULITIS
     Route: 061
     Dates: start: 20171130
  41. METRONIDAZOLE. [Concomitant]
     Active Substance: METRONIDAZOLE
     Route: 048
     Dates: start: 20170907, end: 20171031
  42. PARACETAMOL [Concomitant]
     Active Substance: ACETAMINOPHEN
     Indication: CROHN^S DISEASE
     Route: 048
     Dates: start: 20171222, end: 20171226
  43. CIPROFLOXACIN. [Concomitant]
     Active Substance: CIPROFLOXACIN
     Route: 048
     Dates: start: 20170112, end: 20170518
  44. MOVICOL [Concomitant]
     Active Substance: POLYETHYLENE GLYCOL 3350\POTASSIUM CHLORIDE\SODIUM BICARBONATE\SODIUM CHLORIDE
     Indication: CROHN^S DISEASE
     Route: 048
     Dates: start: 20161109
  45. DERMOL 500 [Concomitant]
     Indication: VASCULITIS
     Dosage: LOTION
     Route: 061
     Dates: start: 2016
  46. TRIMOVATE [Concomitant]
     Active Substance: CLOBETASONE BUTYRATE\NYSTATIN\OXYTETRACYCLINE CALCIUM
     Indication: RASH
     Route: 061
     Dates: start: 20170729
  47. DOXYCYCLINE. [Concomitant]
     Active Substance: DOXYCYCLINE
     Indication: CROHN^S DISEASE
     Route: 048
     Dates: start: 20171222
  48. BETAMETHASONE. [Concomitant]
     Active Substance: BETAMETHASONE
     Indication: CROHN^S DISEASE
     Route: 048
     Dates: start: 20171222
  49. ADCAL D3 [Concomitant]
     Active Substance: CALCIUM CARBONATE\CHOLECALCIFEROL
     Indication: CROHN^S DISEASE
     Route: 048
     Dates: start: 20171222
  50. FRESUBIN [Concomitant]
     Active Substance: AMINO ACIDS\DEXTROSE\ELECTROLYTES NOS\SOYBEAN OIL\VITAMINS
     Indication: HYPOPHAGIA
     Route: 048
     Dates: start: 20171028
  51. PROTOPIC [Concomitant]
     Active Substance: TACROLIMUS
     Indication: VASCULITIS
     Dosage: ALTERNATE DAYS
     Route: 061
     Dates: start: 20171130

REACTIONS (2)
  - Anal fistula [Recovered/Resolved]
  - Erythema multiforme [Recovered/Resolved]

NARRATIVE: CASE EVENT DATE: 20180108
